FAERS Safety Report 4488247-X (Version None)
Quarter: 2004Q4

REPORT INFORMATION
  Report Type: 
  Country: None (occurrence: None)
  Receive Date: 20041028
  Receipt Date: 20041022
  Transmission Date: 20050328
  Serious: Yes (Other)
  Sender: FDA-Public Use
  Company Number: PHBS2004JP14254

PATIENT
  Age: 77 Year
  Sex: Female

DRUGS (6)
  1. DIOVAN [Suspect]
     Dosage: 80 MG/DAY
     Route: 048
     Dates: end: 20040115
  2. ADALAT [Concomitant]
     Dosage: 20 MG, UNK
     Route: 048
  3. GASMOTIN [Concomitant]
     Dosage: 15 MG, UNK
     Route: 048
  4. MYSLEE [Concomitant]
     Dosage: 10 MG, UNK
     Route: 048
  5. BIOFERMIN [Concomitant]
     Dosage: 3 G, UNK
     Route: 048
  6. POLARAMINE [Concomitant]
     Dosage: 6 MG, UNK
     Route: 048

REACTIONS (5)
  - AGITATION [None]
  - ANOREXIA [None]
  - ANXIETY [None]
  - DEPRESSION [None]
  - INSOMNIA [None]
